FAERS Safety Report 8059311-3 (Version None)
Quarter: 2012Q1

REPORT INFORMATION
  Report Type: 
  Country: None (occurrence: None)
  Receive Date: 20120120
  Receipt Date: 20120106
  Transmission Date: 20120608
  Serious: Yes (Hospitalization)
  Sender: FDA-Public Use
  Company Number: KR-MYLANLABS-2011S1025716

PATIENT
  Age: 72 Year
  Sex: Male

DRUGS (4)
  1. CARBIDOPA AND LEVODOPA [Suspect]
     Indication: PARKINSON'S DISEASE
     Dosage: LEVODOPA/CARBIDOPA 250/25MG QID
     Route: 048
  2. LEVODOPA [Suspect]
     Indication: PARKINSON'S DISEASE
     Dosage: INITIAL DOSAGE AND FORMULATION UNKNOWN
     Route: 065
  3. LEVODOPA W/BENSERAZIDE [Suspect]
     Indication: PARKINSON'S DISEASE
     Dosage: LEVODOPA/BENSERAZIDE 100/25MG QID (4 TABLETS/DAY)
     Route: 048
  4. CARBIDOPA AND LEVODOPA [Suspect]
     Dosage: LEVODOPA/CARBIDOPA 250/25MG 12 TABLETS PER DAY
     Route: 048

REACTIONS (3)
  - RENAL FAILURE ACUTE [None]
  - DYSKINESIA [None]
  - RHABDOMYOLYSIS [None]
